FAERS Safety Report 7388356-1 (Version None)
Quarter: 2011Q2

REPORT INFORMATION
  Report Type: 
  Country: None (occurrence: None)
  Receive Date: 20110401
  Receipt Date: 20110321
  Transmission Date: 20111010
  Serious: Yes (Hospitalization)
  Sender: FDA-Public Use
  Company Number: PHHY2011FR23671

PATIENT
  Sex: Male

DRUGS (9)
  1. ASPIRIN [Concomitant]
  2. CELEBREX [Suspect]
     Dosage: 200 MG, UNK
     Route: 048
  3. DIAMICRON [Concomitant]
  4. ARCOXIA [Suspect]
     Dosage: 2 DF, QW
     Dates: end: 20110101
  5. ARTOTEC [Suspect]
  6. ARCOXIA [Suspect]
     Dosage: 2 DF, QD
     Dates: start: 20101201, end: 20101201
  7. VOLTAREN [Suspect]
  8. MOBIC [Suspect]
  9. ARCOXIA [Suspect]
     Dosage: 2 DF, WEEKLY
     Dates: start: 20101001, end: 20101201

REACTIONS (5)
  - NEPHROTIC SYNDROME [None]
  - HYPERCHOLESTEROLAEMIA [None]
  - HYPERTRIGLYCERIDAEMIA [None]
  - GLYCOSYLATED HAEMOGLOBIN INCREASED [None]
  - SELF-MEDICATION [None]
